FAERS Safety Report 6601900-4 (Version None)
Quarter: 2010Q1

REPORT INFORMATION
  Report Type: 
  Country: None (occurrence: None)
  Receive Date: 20100225
  Receipt Date: 20100216
  Transmission Date: 20100710
  Serious: Yes (Other)
  Sender: FDA-Public Use
  Company Number: US-JNJFOC-20100207836

PATIENT
  Sex: Male
  Weight: 121.56 kg

DRUGS (2)
  1. DOXIL [Suspect]
     Indication: LEUKAEMIA
     Route: 042
     Dates: start: 20091030
  2. VELCADE [Concomitant]
     Indication: LEUKAEMIA
     Route: 065

REACTIONS (3)
  - FALL [None]
  - INAPPROPRIATE SCHEDULE OF DRUG ADMINISTRATION [None]
  - OFF LABEL USE [None]
